FAERS Safety Report 10513222 (Version 3)
Quarter: 2020Q2

REPORT INFORMATION
  Report Type: Spontaneous
  Country: CA (occurrence: CA)
  Receive Date: 20141013
  Receipt Date: 20200507
  Transmission Date: 20200713
  Serious: Yes (Death, Hospitalization, Other)
  Sender: FDA-Public Use
  Company Number: CA-AUROBINDO-AUR-APL-2014-10830

PATIENT
  Age: 74 Year
  Sex: Female

DRUGS (9)
  1. MIRTAZAPINE TABLET [Suspect]
     Active Substance: MIRTAZAPINE
     Indication: DEPRESSION
     Dosage: 30 MG, DAILY
     Route: 065
  2. LACTULOSE. [Suspect]
     Active Substance: LACTULOSE
     Indication: CONSTIPATION
     Dosage: 30 MILLIGRAM, ONCE A DAY
     Route: 065
  3. MORPHINE SULFATE. [Suspect]
     Active Substance: MORPHINE SULFATE
     Indication: PAIN
     Dosage: 30 MG, EVERY FOUR HOUR
     Route: 065
  4. BISACODYL. [Suspect]
     Active Substance: BISACODYL
     Indication: CONSTIPATION
     Dosage: 10 MILLIGRAM, ONCE A DAY
     Route: 065
  5. DOCUSATE SODIUM. [Suspect]
     Active Substance: DOCUSATE SODIUM
     Indication: CONSTIPATION
     Dosage: 200 MILLIGRAM, ONCE A DAY
     Route: 065
  6. FUROSEMIDE. [Suspect]
     Active Substance: FUROSEMIDE
     Indication: OEDEMA PERIPHERAL
     Dosage: 40 MILLIGRAM, DAILY
     Route: 065
  7. SODIUM PHOSPHATE [Suspect]
     Active Substance: SODIUM PHOSPHATE
     Indication: CONSTIPATION
     Dosage: 130 MILLILITER, ONCE A DAY
     Route: 065
  8. MIRTAZAPINE TABLET [Suspect]
     Active Substance: MIRTAZAPINE
     Indication: MAJOR DEPRESSION
  9. DIMENHYDRINATE. [Suspect]
     Active Substance: DIMENHYDRINATE
     Indication: VOMITING
     Dosage: 50 MG, EVERY FOUR HOUR
     Route: 065

REACTIONS (18)
  - Intestinal pseudo-obstruction [Fatal]
  - Nausea [Fatal]
  - Vomiting [Fatal]
  - Mutism [Fatal]
  - Abnormal behaviour [Fatal]
  - Hypokinesia [Fatal]
  - Constipation [Fatal]
  - Intestinal obstruction [Fatal]
  - Urinary retention [Fatal]
  - Myocardial infarction [Fatal]
  - Delirium [Fatal]
  - Altered state of consciousness [Fatal]
  - Abdominal distension [Fatal]
  - Abdominal discomfort [Fatal]
  - Condition aggravated [Fatal]
  - Gastrointestinal sounds abnormal [Fatal]
  - Cognitive disorder [Fatal]
  - Somnolence [Fatal]
